FAERS Safety Report 18058051 (Version 2)
Quarter: 2020Q3

REPORT INFORMATION
  Report Type: Spontaneous
  Country: BR (occurrence: BR)
  Receive Date: 20200723
  Receipt Date: 20200825
  Transmission Date: 20201103
  Serious: Yes (Other)
  Sender: FDA-Public Use
  Company Number: BR-AMGEN-BRASP2019137457

PATIENT
  Age: 57 Year
  Sex: Male

DRUGS (7)
  1. TECNOMET [METHOTREXATE SODIUM] [Concomitant]
     Active Substance: METHOTREXATE SODIUM
     Dosage: UNK, WEEKLY
  2. METHOTREXATE. [Concomitant]
     Active Substance: METHOTREXATE
     Dosage: 3 DF (TABLETS), WEEKLY
  3. ENBREL [Suspect]
     Active Substance: ETANERCEPT
     Dosage: INCREASED INTERVAL
     Route: 065
  4. ENBREL [Suspect]
     Active Substance: ETANERCEPT
     Dosage: UNK, WEEKLY
     Route: 065
     Dates: start: 2014
  5. ENBREL [Suspect]
     Active Substance: ETANERCEPT
     Indication: PRODUCT USED FOR UNKNOWN INDICATION
     Dosage: UNK, WEEKLY
     Route: 065
     Dates: start: 2005
  6. ENBREL [Suspect]
     Active Substance: ETANERCEPT
     Dosage: UNK, WEEKLY
     Route: 065
     Dates: start: 2005
  7. ENBREL [Suspect]
     Active Substance: ETANERCEPT
     Dosage: INCREASED INTERVAL
     Route: 065

REACTIONS (5)
  - Influenza [Unknown]
  - Off label use [Unknown]
  - Migraine [Unknown]
  - Immunosuppression [Unknown]
  - Nasopharyngitis [Unknown]
